FAERS Safety Report 5425910-8 (Version None)
Quarter: 2007Q3

REPORT INFORMATION
  Report Type: 
  Country: None (occurrence: None)
  Receive Date: 20070827
  Receipt Date: 20070816
  Transmission Date: 20080115
  Serious: Yes (Other)
  Sender: FDA-Public Use
  Company Number: GB-JNJFOC-20070803425

PATIENT
  Sex: Male
  Weight: 70 kg

DRUGS (10)
  1. REMICADE [Suspect]
     Indication: RHEUMATOID ARTHRITIS
     Route: 042
  2. ASCORBIC ACID [Concomitant]
  3. TRAMADOL HCL [Concomitant]
  4. METHOTREXATE [Concomitant]
  5. PREDNISOLONE [Concomitant]
  6. BECOTIDE [Concomitant]
  7. CALCICHEW [Concomitant]
  8. CODYDRAMOL [Concomitant]
  9. FOLIC ACID [Concomitant]
  10. VENTOLIN [Concomitant]

REACTIONS (2)
  - LUNG NEOPLASM MALIGNANT [None]
  - METASTASES TO CENTRAL NERVOUS SYSTEM [None]
